FAERS Safety Report 8904607 (Version 5)
Quarter: 2013Q2

REPORT INFORMATION
  Report Type: Spontaneous
  Country: US (occurrence: US)
  Receive Date: 20121112
  Receipt Date: 20130425
  Transmission Date: 20140414
  Serious: Yes (Hospitalization, Disabling, Other)
  Sender: FDA-Public Use
  Company Number: US-009507513-1211USA004397

PATIENT
  Sex: Female
  Weight: 78.46 kg

DRUGS (6)
  1. FOSAMAX [Suspect]
     Indication: OSTEOPOROSIS
     Dosage: 70 MG, QW
     Route: 048
     Dates: end: 20100708
  2. FOSAMAX [Suspect]
     Indication: OSTEOPENIA
  3. ALENDRONATE SODIUM [Suspect]
     Dosage: 70 MG, UNK
  4. CALCIUM (UNSPECIFIED) [Concomitant]
     Dosage: 600 MG, QD
     Dates: start: 1982
  5. ZOCOR [Concomitant]
     Indication: HYPERLIPIDAEMIA
     Dosage: 20 MG, QD
     Route: 048
     Dates: start: 20031215, end: 20060714
  6. SIMVASTATIN [Concomitant]
     Dosage: 20 MG, UNK
     Dates: start: 20060714

REACTIONS (31)
  - Intramedullary rod insertion [Not Recovered/Not Resolved]
  - Haematocrit abnormal [Unknown]
  - Surgery [Unknown]
  - Surgery [Unknown]
  - Surgery [Unknown]
  - Infection [Unknown]
  - Post procedural infection [Unknown]
  - Breast cyst excision [Unknown]
  - Femur fracture [Recovered/Resolved]
  - Dental prosthesis user [Unknown]
  - Endodontic procedure [Unknown]
  - Hypertension [Unknown]
  - Pain [Unknown]
  - Depression [Unknown]
  - Anxiety [Unknown]
  - Sleep disorder [Unknown]
  - Hypoaesthesia [Unknown]
  - Back injury [Unknown]
  - Neuropathy peripheral [Unknown]
  - Hypoaesthesia [Unknown]
  - Sinusitis [Unknown]
  - Dermatitis contact [Unknown]
  - Fungal infection [Unknown]
  - Nervous system disorder [Unknown]
  - Breast lump removal [Unknown]
  - Neck surgery [Unknown]
  - Inappropriate schedule of drug administration [Unknown]
  - Arthritis [Unknown]
  - Limb injury [Unknown]
  - Pain in extremity [Unknown]
  - Dyspepsia [Unknown]
